FAERS Safety Report 4795500-9 (Version None)
Quarter: 2005Q3

REPORT INFORMATION
  Report Type: 
  Country: None (occurrence: None)
  Receive Date: 20050916
  Receipt Date: 20050714
  Transmission Date: 20060218
  Serious: Yes (Hospitalization)
  Sender: FDA-Public Use
  Company Number: US-JNJFOC-20050505828

PATIENT
  Age: 43 Year
  Sex: Female
  Weight: 60.3284 kg

DRUGS (3)
  1. TOPAMAX [Suspect]
     Indication: MIGRAINE PROPHYLAXIS
     Dosage: 75 MG, 3 IN 1 DAY; ORAL, 25 MG, 3 IN 1 DAY; ORAL
     Route: 048
     Dates: start: 20050401, end: 20050522
  2. THYROID MEDICATIONS (UNKNOWN) THYROID HORMONES [Concomitant]
  3. IMITREX (UNKNOWN) SUMATRIPTAN [Concomitant]

REACTIONS (16)
  - ANOREXIA [None]
  - CHEST PAIN [None]
  - COORDINATION ABNORMAL [None]
  - DISTURBANCE IN ATTENTION [None]
  - DYSGEUSIA [None]
  - EMOTIONAL DISORDER [None]
  - HEADACHE [None]
  - HYPOTHYROIDISM [None]
  - HYPOVOLAEMIA [None]
  - NAUSEA [None]
  - PANIC REACTION [None]
  - SYNCOPE [None]
  - THERAPEUTIC RESPONSE UNEXPECTED [None]
  - TREMOR [None]
  - VOMITING [None]
  - WEIGHT DECREASED [None]
